FAERS Safety Report 16654333 (Version 5)
Quarter: 2020Q4

REPORT INFORMATION
  Report Type: Spontaneous
  Country: US (occurrence: US)
  Receive Date: 20190731
  Receipt Date: 20201022
  Transmission Date: 20210113
  Serious: Yes (Other)
  Sender: FDA-Public Use
  Company Number: US-GILEAD-2019-0420450

PATIENT
  Age: 36 Year
  Sex: Male
  Weight: 86.17 kg

DRUGS (10)
  1. FAMOTIDINE. [Concomitant]
     Active Substance: FAMOTIDINE
     Dosage: UNK
     Dates: start: 201501, end: 201501
  2. AMOXICILLIN. [Concomitant]
     Active Substance: AMOXICILLIN
     Dosage: UNK
     Dates: start: 201502, end: 201712
  3. DAPSON [Concomitant]
     Active Substance: DAPSONE
  4. ACYCLOVIR [ACICLOVIR] [Concomitant]
     Active Substance: ACYCLOVIR
     Dosage: UNK
     Dates: start: 20151202, end: 20160301
  5. BACTRIM [Concomitant]
     Active Substance: SULFAMETHOXAZOLE\TRIMETHOPRIM
     Dosage: UNK
     Dates: start: 20150126, end: 20150129
  6. PENICILLIN [PENICILLIN NOS] [Concomitant]
     Active Substance: PENICILLIN
     Dosage: UNK
     Dates: start: 201501, end: 201502
  7. STRIBILD [Suspect]
     Active Substance: COBICISTAT\ELVITEGRAVIR\EMTRICITABINE\TENOFOVIR DISOPROXIL FUMARATE
     Indication: HIV INFECTION
     Dosage: UNK
     Route: 048
     Dates: start: 20150126, end: 20161128
  8. ACETAMINOPHEN. [Concomitant]
     Active Substance: ACETAMINOPHEN
  9. CORTISONE [Concomitant]
     Active Substance: CORTISONE
     Dosage: UNK
     Dates: start: 201504, end: 201507
  10. GENVOYA [Concomitant]
     Active Substance: COBICISTAT\ELVITEGRAVIR\EMTRICITABINE\TENOFOVIR ALAFENAMIDE FUMARATE

REACTIONS (13)
  - Insomnia [Not Recovered/Not Resolved]
  - Suicidal ideation [Not Recovered/Not Resolved]
  - Tooth loss [Unknown]
  - Anxiety [Not Recovered/Not Resolved]
  - Osteoporotic fracture [Unknown]
  - Bone density decreased [Unknown]
  - Unhealthy diet [Not Recovered/Not Resolved]
  - Emotional distress [Unknown]
  - Economic problem [Unknown]
  - Anhedonia [Unknown]
  - Osteoporosis [Not Recovered/Not Resolved]
  - Pain [Unknown]
  - Depression [Not Recovered/Not Resolved]

NARRATIVE: CASE EVENT DATE: 201711
